FAERS Safety Report 6456324-X (Version None)
Quarter: 2009Q4

REPORT INFORMATION
  Report Type: 
  Country: None (occurrence: None)
  Receive Date: 20091124
  Receipt Date: 20091124
  Transmission Date: 20100525
  Serious: Yes (Hospitalization)
  Sender: FDA-Public Use
  Company Number: None

PATIENT
  Sex: Male
  Weight: 4.012 kg

DRUGS (4)
  1. GENTAMICIN [Suspect]
     Indication: OPHTHALMIA NEONATORUM
     Dosage: SMALL AMOUNT TO BOTH CONJUCTIV ONCE TOP
     Route: 061
     Dates: start: 20091006, end: 20091006
  2. GENTAMICIN [Suspect]
     Indication: PROPHYLAXIS
     Dosage: SMALL AMOUNT TO BOTH CONJUCTIV ONCE TOP
     Route: 061
     Dates: start: 20091006, end: 20091006
  3. VITAMIN K TAB [Concomitant]
  4. HEPATITIS B VACCINE [Concomitant]

REACTIONS (3)
  - ERYTHEMA OF EYELID [None]
  - EYELID MARGIN CRUSTING [None]
  - OPHTHALMIA NEONATORUM [None]
